FAERS Safety Report 4514658-X (Version None)
Quarter: 2004Q4

REPORT INFORMATION
  Report Type: 
  Country: None (occurrence: None)
  Receive Date: 20041126
  Receipt Date: 20041119
  Transmission Date: 20050328
  Serious: Yes (Hospitalization)
  Sender: FDA-Public Use
  Company Number: UKP04000425

PATIENT
  Age: 31 Year
  Sex: Male

DRUGS (1)
  1. DANTRIUM [Suspect]
     Indication: MUSCLE SPASMS
     Dosage: ORAL
     Route: 048

REACTIONS (2)
  - COMA [None]
  - CONVULSION [None]
